FAERS Safety Report 11062341 (Version 1)
Quarter: 2015Q2

REPORT INFORMATION
  Report Type: Report from Study
  Country: FR (occurrence: FR)
  Receive Date: 20150424
  Receipt Date: 20150424
  Transmission Date: 20150821
  Serious: Yes (Other)
  Sender: FDA-Public Use
  Company Number: FR-SA-2015SA050419

PATIENT
  Age: 88 Year
  Sex: Female

DRUGS (3)
  1. GLIMEPIRIDE. [Suspect]
     Active Substance: GLIMEPIRIDE
     Route: 065
  2. PANTOPRAZOLE [Interacting]
     Active Substance: PANTOPRAZOLE SODIUM
     Route: 065
  3. IRBESARTAN. [Interacting]
     Active Substance: IRBESARTAN
     Route: 065

REACTIONS (3)
  - Hyponatraemia [Unknown]
  - Drug interaction [Unknown]
  - Malaise [Unknown]
